FAERS Safety Report 9749937 (Version 1)
Quarter: 2013Q4

REPORT INFORMATION
  Report Type: Spontaneous
  Country: GB (occurrence: GB)
  Receive Date: 20131212
  Receipt Date: 20131212
  Transmission Date: 20140711
  Serious: Yes (Other)
  Sender: FDA-Public Use
  Company Number: GB-TAKEDA-2013TUS003119

PATIENT
  Sex: 0

DRUGS (11)
  1. FEBUXOSTAT [Suspect]
     Indication: GOUT
     Dosage: 80 MG, QD
     Route: 048
     Dates: start: 20130826
  2. PROGRAF [Suspect]
     Dosage: 7 MG, QD
  3. ALFACALCIDOL [Concomitant]
  4. CALCICHEW [Concomitant]
  5. DOXAZOSIN [Concomitant]
  6. ATENOLOL [Concomitant]
  7. LANSOPRAZOLE [Concomitant]
  8. LOPERAMIDE [Concomitant]
  9. MYCOPHENOLATE MOFETIL [Concomitant]
  10. PREDNISOLONE [Concomitant]
  11. SILDENAFIL CITRATE [Concomitant]

REACTIONS (4)
  - Blood creatinine abnormal [Recovered/Resolved]
  - Hyperkalaemia [Recovered/Resolved]
  - Drug level increased [Recovered/Resolved]
  - Drug interaction [Recovered/Resolved]
